FAERS Safety Report 6559904-6 (Version None)
Quarter: 2010Q1

REPORT INFORMATION
  Report Type: 
  Country: None (occurrence: None)
  Receive Date: 20100129
  Receipt Date: 20090914
  Transmission Date: 20100710
  Serious: No
  Sender: FDA-Public Use
  Company Number: US-ABBOTT-09P-163-0597158-00

PATIENT
  Sex: Male

DRUGS (3)
  1. HUMIRA [Suspect]
     Indication: ANKYLOSING SPONDYLITIS
     Dates: start: 20090819
  2. ADVAIR DISKUS 100/50 [Concomitant]
     Indication: ASTHMA
  3. ALBUTEROL [Concomitant]
     Indication: ASTHMA

REACTIONS (7)
  - EPISTAXIS [None]
  - INJECTION SITE ERYTHEMA [None]
  - PRODUCTIVE COUGH [None]
  - PRURITUS [None]
  - RASH MACULO-PAPULAR [None]
  - SINUS DISORDER [None]
  - SPUTUM DISCOLOURED [None]
